FAERS Safety Report 5622308-4 (Version None)
Quarter: 2008Q1

REPORT INFORMATION
  Report Type: 
  Country: None (occurrence: None)
  Receive Date: 20080114
  Receipt Date: 20071015
  Transmission Date: 20080703
  Serious: Yes (Hospitalization)
  Sender: FDA-Public Use
  Company Number: A03200706086

PATIENT
  Age: 63 Year
  Sex: Male
  Weight: 83.9154 kg

DRUGS (12)
  1. PLAVIX [Suspect]
     Indication: CEREBROVASCULAR ACCIDENT PROPHYLAXIS
     Dosage: 75 MG QD - ORAL
     Route: 048
     Dates: start: 20070401
  2. ATENOLOL [Concomitant]
  3. ACETYLSALICYLIC ACID SRT [Concomitant]
  4. ATORVASTATIN CALCIUM [Concomitant]
  5. ESOMEPRAZOLE [Concomitant]
  6. CITALOPRAM YDROBROMIDE [Concomitant]
  7. PROPOXYPHENE + ACETAINOPHEN [Concomitant]
  8. RISPERIDONE [Concomitant]
  9. VITAMIN B-12 [Concomitant]
  10. LATANOPROST [Concomitant]
  11. ACETAMINOPHEN AND OXYCODONE HCL [Concomitant]
  12. PARACETAMOL [Concomitant]

REACTIONS (2)
  - ABDOMINAL PAIN UPPER [None]
  - PANCREATITIS CHRONIC [None]
